FAERS Safety Report 22713638 (Version 8)
Quarter: 2025Q3

REPORT INFORMATION
  Report Type: Spontaneous
  Country: EU (occurrence: EU)
  Receive Date: 20230717
  Receipt Date: 20250703
  Transmission Date: 20251020
  Serious: Yes (Hospitalization, Other)
  Sender: OTSUKA
  Company Number: EU-OTSUKA-2022_053500

PATIENT
  Age: 55 Year
  Sex: Female

DRUGS (20)
  1. PONATINIB [Suspect]
     Active Substance: PONATINIB
     Indication: B-cell type acute leukaemia
     Dosage: 45 MILLIGRAM, QD
     Route: 065
     Dates: start: 2018, end: 2018
  2. PONATINIB [Suspect]
     Active Substance: PONATINIB
     Indication: Philadelphia chromosome positive
     Dosage: 30 MILLIGRAM, QD
     Route: 065
     Dates: start: 2018, end: 2018
  3. PONATINIB [Suspect]
     Active Substance: PONATINIB
     Route: 065
     Dates: start: 201812
  4. PONATINIB [Suspect]
     Active Substance: PONATINIB
     Route: 065
     Dates: start: 201812, end: 201911
  5. PONATINIB [Suspect]
     Active Substance: PONATINIB
     Dosage: 45 MILLIGRAM, QD
     Route: 065
     Dates: start: 2018, end: 2019
  6. PONATINIB [Suspect]
     Active Substance: PONATINIB
     Dosage: 15 MILLIGRAM, QD
     Route: 065
     Dates: start: 2020
  7. BUSULFAN [Suspect]
     Active Substance: BUSULFAN
     Indication: Cord blood transplant therapy
     Route: 065
     Dates: start: 201808, end: 201808
  8. CYTARABINE [Suspect]
     Active Substance: CYTARABINE
     Indication: Philadelphia chromosome positive
     Route: 065
     Dates: start: 2018
  9. CYTARABINE [Suspect]
     Active Substance: CYTARABINE
     Indication: B-cell type acute leukaemia
     Route: 065
  10. DASATINIB [Suspect]
     Active Substance: DASATINIB
     Indication: Philadelphia chromosome positive
     Route: 065
     Dates: start: 2018, end: 2018
  11. DASATINIB [Suspect]
     Active Substance: DASATINIB
     Indication: B-cell type acute leukaemia
     Route: 065
  12. CYCLOPHOSPHAMIDE [Suspect]
     Active Substance: CYCLOPHOSPHAMIDE
     Indication: Prophylaxis against graft versus host disease
     Route: 065
     Dates: end: 201901
  13. FLUDARABINE [Suspect]
     Active Substance: FLUDARABINE PHOSPHATE
     Indication: Cord blood transplant therapy
     Route: 065
     Dates: start: 201808, end: 201808
  14. MYCOPHENOLIC ACID [Suspect]
     Active Substance: MYCOPHENOLIC ACID
     Indication: Prophylaxis against graft versus host disease
     Route: 065
     Dates: end: 201901
  15. THIOTEPA [Suspect]
     Active Substance: THIOTEPA
     Indication: Cord blood transplant therapy
     Route: 065
     Dates: start: 201808, end: 201808
  16. MITOXANTRONE HYDROCHLORIDE [Suspect]
     Active Substance: MITOXANTRONE HYDROCHLORIDE
     Indication: Philadelphia chromosome positive
     Route: 065
     Dates: start: 2018
  17. MITOXANTRONE HYDROCHLORIDE [Suspect]
     Active Substance: MITOXANTRONE HYDROCHLORIDE
     Indication: B-cell type acute leukaemia
     Route: 065
  18. BLINATUMOMAB [Suspect]
     Active Substance: BLINATUMOMAB
     Indication: Philadelphia chromosome positive
     Route: 065
     Dates: start: 2020
  19. BLINATUMOMAB [Suspect]
     Active Substance: BLINATUMOMAB
     Indication: B-cell type acute leukaemia
     Route: 065
  20. CYCLOSPORINE [Suspect]
     Active Substance: CYCLOSPORINE
     Indication: Prophylaxis against graft versus host disease
     Route: 065
     Dates: end: 201901

REACTIONS (3)
  - Haematotoxicity [Unknown]
  - Acute kidney injury [Unknown]
  - Haemophagocytic lymphohistiocytosis [Recovered/Resolved]

NARRATIVE: CASE EVENT DATE: 20180101
